FAERS Safety Report 25088780 (Version 4)
Quarter: 2025Q3

REPORT INFORMATION
  Report Type: Report from Study
  Country: CA (occurrence: CA)
  Receive Date: 20250318
  Receipt Date: 20250704
  Transmission Date: 20251020
  Serious: Yes (Other)
  Sender: SANDOZ
  Company Number: CA-SANDOZ-SDZ2025CA016435

PATIENT
  Sex: Female

DRUGS (1)
  1. HYRIMOZ [Suspect]
     Active Substance: ADALIMUMAB-ADAZ
     Indication: Rheumatoid arthritis
     Dosage: 40 MG, Q2W (40 MG SC EVERY OTHER WEEK;BIWEEKLY)
     Route: 058
     Dates: start: 20230124

REACTIONS (2)
  - Condition aggravated [Not Recovered/Not Resolved]
  - Sinus congestion [Not Recovered/Not Resolved]
